FAERS Safety Report 9537913 (Version 2)
Quarter: 2013Q3

REPORT INFORMATION
  Report Type: Spontaneous
  Country: US (occurrence: US)
  Receive Date: 20130919
  Receipt Date: 20130927
  Transmission Date: 20140515
  Serious: Yes (Other)
  Sender: FDA-Public Use
  Company Number: GXBR2013US001683

PATIENT
  Sex: Female

DRUGS (3)
  1. LORAZEPAM ACTAVIS 0.5MG [Suspect]
     Indication: ANXIETY
     Dosage: UNK DF, UNK
  2. LORAZEPAM ACTAVIS 0.5MG [Suspect]
     Indication: INSOMNIA
  3. LORAZEPAM ACTAVIS 0.5MG [Suspect]
     Indication: CONVULSION

REACTIONS (4)
  - Glaucoma [Unknown]
  - Fluid retention [Unknown]
  - Gastrointestinal disorder [Unknown]
  - Drug ineffective [Unknown]
